FAERS Safety Report 5368963-8 (Version None)
Quarter: 2007Q2

REPORT INFORMATION
  Report Type: 
  Country: None (occurrence: None)
  Receive Date: 20070625
  Receipt Date: 20061110
  Transmission Date: 20071010
  Serious: No
  Sender: FDA-Public Use
  Company Number: US-ASTRAZENECA-2006UW23820

PATIENT
  Age: 88 Year
  Sex: Male

DRUGS (5)
  1. CRESTOR [Suspect]
     Indication: HYPERCHOLESTEROLAEMIA
     Route: 048
  2. HYDROCHLORIDE [Concomitant]
     Route: 048
  3. ATENOLOL [Concomitant]
     Route: 048
  4. ENALAPRIL [Concomitant]
     Route: 048
  5. ASPIRIN [Concomitant]
     Route: 048

REACTIONS (3)
  - JOINT STIFFNESS [None]
  - PAIN IN EXTREMITY [None]
  - VISION BLURRED [None]
